FAERS Safety Report 9518204 (Version 1)
Quarter: 2013Q3

REPORT INFORMATION
  Report Type: Spontaneous
  Country: CA (occurrence: CA)
  Receive Date: 20130912
  Receipt Date: 20130912
  Transmission Date: 20140515
  Serious: Yes (Life-Threatening)
  Sender: FDA-Public Use
  Company Number: CA-ROCHE-1273364

PATIENT
  Age: 48 Year
  Sex: Male
  Weight: 88 kg

DRUGS (2)
  1. RITUXAN [Suspect]
     Indication: PRODUCT USED FOR UNKNOWN INDICATION
     Route: 042
  2. CIPRALEX [Concomitant]
     Route: 065

REACTIONS (4)
  - Infusion related reaction [Recovered/Resolved]
  - Lip swelling [Recovered/Resolved]
  - Speech disorder [Recovered/Resolved]
  - Throat irritation [Recovered/Resolved]
